FAERS Safety Report 4875345-1 (Version None)
Quarter: 2006Q1

REPORT INFORMATION
  Report Type: 
  Country: None (occurrence: None)
  Receive Date: 20060105
  Receipt Date: 20060103
  Transmission Date: 20060701
  Serious: Yes (Other)
  Sender: FDA-Public Use
  Company Number: 2005BI020200

PATIENT
  Age: 43 Year
  Sex: Female

DRUGS (7)
  1. AVONEX [Suspect]
     Indication: MULTIPLE SCLEROSIS
     Dosage: 30 UG; QW; IM
     Route: 030
     Dates: start: 20050125
  2. AVONEX [Suspect]
     Indication: MULTIPLE SCLEROSIS
     Dosage: 30 UG; QW; IM
     Route: 030
  3. NEURONTIN [Concomitant]
  4. CYMBALTA [Concomitant]
  5. SINEMET [Concomitant]
  6. NORCO [Concomitant]
  7. ASPIRIN [Concomitant]

REACTIONS (3)
  - BENIGN GASTRIC NEOPLASM [None]
  - OCULAR VASCULAR DISORDER [None]
  - OPTIC NEURITIS [None]
